FAERS Safety Report 17914170 (Version 1)
Quarter: 2020Q2

REPORT INFORMATION
  Report Type: Spontaneous
  Country: ES (occurrence: ES)
  Receive Date: 20200618
  Receipt Date: 20200618
  Transmission Date: 20200714
  Serious: Yes (Hospitalization)
  Sender: FDA-Public Use
  Company Number: NVSC2020ES169433

PATIENT
  Age: 46 Year
  Sex: Male

DRUGS (2)
  1. COLCHICINA SEID [Suspect]
     Active Substance: COLCHICINE
     Indication: BEHCET^S SYNDROME
     Dosage: 0.5 MG, Q24H (1-0-0)
     Route: 048
     Dates: start: 20190131, end: 20191209
  2. MYFORTIC [Suspect]
     Active Substance: MYCOPHENOLATE SODIUM
     Indication: BEHCET^S SYNDROME
     Dosage: 720 MG, Q12H (2-0-2)
     Route: 048
     Dates: start: 20190131, end: 20191129

REACTIONS (3)
  - Sepsis [Recovered/Resolved]
  - Agranulocytosis [Recovered/Resolved]
  - Gastroenteritis [Recovered/Resolved]

NARRATIVE: CASE EVENT DATE: 20191209
